FAERS Safety Report 23027314 (Version 1)
Quarter: 2023Q4

REPORT INFORMATION
  Report Type: Spontaneous
  Country: US (occurrence: US)
  Receive Date: 20231004
  Receipt Date: 20231004
  Transmission Date: 20240110
  Serious: No
  Sender: FDA-Public Use
  Company Number: US-AMGEN-USASP2023173712

PATIENT
  Sex: Female

DRUGS (1)
  1. VECTIBIX [Suspect]
     Active Substance: PANITUMUMAB
     Indication: Colon cancer metastatic
     Dosage: UNK
     Route: 065
     Dates: end: 2023

REACTIONS (2)
  - Skin haemorrhage [Unknown]
  - Rash [Unknown]

NARRATIVE: CASE EVENT DATE: 20230901
